FAERS Safety Report 23798681 (Version 2)
Quarter: 2024Q2

REPORT INFORMATION
  Report Type: Spontaneous
  Country: US (occurrence: US)
  Receive Date: 20240430
  Receipt Date: 20240530
  Transmission Date: 20240716
  Serious: Yes (Other)
  Sender: FDA-Public Use
  Company Number: US-MLMSERVICE-20240412-PI025722-00177-1

PATIENT
  Age: 2 Month
  Sex: Male

DRUGS (4)
  1. TRIAMCINOLONE [Suspect]
     Active Substance: TRIAMCINOLONE
     Indication: Steroid therapy
     Dosage: BODY
     Route: 061
  2. CORTIZONE 10 INTENSIVE HEALING [Suspect]
     Active Substance: HYDROCORTISONE
     Indication: Steroid therapy
     Dosage: FACE
     Route: 048
  3. CORTIZONE 10 INTENSIVE HEALING [Suspect]
     Active Substance: HYDROCORTISONE
     Dosage: FACE
     Route: 061
  4. KETOCONAZOLE [Concomitant]
     Active Substance: KETOCONAZOLE
     Indication: Steroid therapy
     Dosage: SCALP
     Route: 061

REACTIONS (1)
  - Adrenal suppression [Unknown]
